FAERS Safety Report 8324401-4 (Version None)
Quarter: 2012Q1

REPORT INFORMATION
  Report Type: 
  Country: None (occurrence: None)
  Receive Date: 20120315
  Receipt Date: 20110610
  Transmission Date: 20120608
  Serious: No
  Sender: FDA-Public Use
  Company Number: PHHY2011US43881

PATIENT
  Age: 39 Year
  Sex: Female

DRUGS (1)
  1. GLIENYA (FTY) CAPSULE, 0.5 MG [Suspect]
     Indication: MULTIPLE SCLEROSIS
     Dosage: 0.5 MG, QD,ORAL
     Route: 048
     Dates: start: 20110510

REACTIONS (8)
  - VISUAL IMPAIRMENT [None]
  - MYALGIA [None]
  - ARTHRALGIA [None]
  - SOMNOLENCE [None]
  - INFLUENZA LIKE ILLNESS [None]
  - CHILLS [None]
  - DRY MOUTH [None]
  - SWOLLEN TONGUE [None]
